FAERS Safety Report 7828125-9 (Version None)
Quarter: 2011Q4

REPORT INFORMATION
  Report Type: 
  Country: None (occurrence: None)
  Receive Date: 20111020
  Receipt Date: 20111010
  Transmission Date: 20120403
  Serious: Yes (Other)
  Sender: FDA-Public Use
  Company Number: US-BAYER-2011-099000

PATIENT
  Age: 71 Year
  Sex: Female
  Weight: 100 kg

DRUGS (3)
  1. ASPIRIN [Concomitant]
  2. INSULIN [Concomitant]
  3. ALEVE (CAPLET) [Suspect]
     Indication: ANALGESIC THERAPY
     Route: 048

REACTIONS (3)
  - RECTAL HAEMORRHAGE [None]
  - FLATULENCE [None]
  - ABDOMINAL PAIN UPPER [None]
